FAERS Safety Report 4362555-5 (Version None)
Quarter: 2004Q2

REPORT INFORMATION
  Report Type: 
  Country: None (occurrence: None)
  Receive Date: 20040517
  Receipt Date: 20040211
  Transmission Date: 20050107
  Serious: Yes (Other)
  Sender: FDA-Public Use
  Company Number: SO4-USA-00801-01

PATIENT
  Age: 86 Year
  Sex: Male

DRUGS (8)
  1. NAMENDA [Suspect]
     Indication: DEMENTIA ALZHEIMER'S TYPE
     Dosage: 5 MG QD PO
     Route: 048
     Dates: start: 20040126, end: 20040201
  2. NAMENDA [Suspect]
     Indication: DEMENTIA ALZHEIMER'S TYPE
     Dosage: 10 MG QD PO
     Route: 048
     Dates: start: 20040202, end: 20040206
  3. NAMENDA [Suspect]
     Indication: DEMENTIA ALZHEIMER'S TYPE
     Dosage: 5 MG QD PO
     Route: 048
     Dates: start: 20040207
  4. METFORMIN HCL [Concomitant]
  5. REMINYL [Concomitant]
  6. PAXIL [Concomitant]
  7. ZYPREXA [Concomitant]
  8. TOPROL-XL [Concomitant]

REACTIONS (3)
  - ASTHENIA [None]
  - DIABETES MELLITUS [None]
  - DIZZINESS [None]
